FAERS Safety Report 25888640 (Version 1)
Quarter: 2025Q4

REPORT INFORMATION
  Report Type: Spontaneous
  Country: US (occurrence: US)
  Receive Date: 20251007
  Receipt Date: 20251007
  Transmission Date: 20260118
  Serious: No
  Sender: BRISTOL-MYERS SQUIBB COMPANY
  Company Number: US-BRISTOL-MYERS SQUIBB COMPANY-2025-136618

PATIENT

DRUGS (1)
  1. ZEPOSIA [Suspect]
     Active Substance: OZANIMOD HYDROCHLORIDE
     Indication: Multiple sclerosis
     Dosage: FREQ : ALTERNATING DAYS EVERY OTHER DAY

REACTIONS (6)
  - Dizziness [Unknown]
  - Hepatic enzyme increased [Unknown]
  - Lymphocyte count decreased [Unknown]
  - Orthostatic hypotension [Unknown]
  - Off label use [Unknown]
  - Cardiovascular symptom [Unknown]
